FAERS Safety Report 6152544-2 (Version None)
Quarter: 2009Q2

REPORT INFORMATION
  Report Type: 
  Country: None (occurrence: None)
  Receive Date: 20090413
  Receipt Date: 20090408
  Transmission Date: 20091009
  Serious: Yes (Other)
  Sender: FDA-Public Use
  Company Number: US-BIOGENIDEC-2009BI010339

PATIENT
  Age: 23 Year
  Sex: Female

DRUGS (5)
  1. AVONEX [Suspect]
     Indication: MULTIPLE SCLEROSIS
     Dosage: BASED ON LMP.
     Route: 030
     Dates: start: 20080515, end: 20090215
  2. PROVIGIL [Concomitant]
     Indication: MULTIPLE SCLEROSIS
     Dates: start: 20080801, end: 20090215
  3. PROVOCET [Concomitant]
     Indication: MULTIPLE SCLEROSIS
     Dates: end: 20090215
  4. PRISTIQ [Concomitant]
     Indication: ANTIDEPRESSANT THERAPY
     Dates: end: 20090215
  5. MULTI-VITAMINS [Concomitant]
     Indication: SUPPLEMENTATION THERAPY

REACTIONS (2)
  - ABORTION SPONTANEOUS [None]
  - PREGNANCY [None]
